FAERS Safety Report 9387786 (Version 1)
Quarter: 2013Q3

REPORT INFORMATION
  Report Type: Spontaneous
  Country: FR (occurrence: None)
  Receive Date: 20130701
  Receipt Date: 20130701
  Transmission Date: 20140515
  Serious: Yes (Death)
  Sender: FDA-Public Use
  Company Number: SYM-2013-05031

PATIENT
  Age: 37 Year
  Sex: 0

DRUGS (1)
  1. AMMONUL [Suspect]
     Indication: CERVIX DISORDER
     Dates: start: 20130614

REACTIONS (1)
  - Death [None]
